FAERS Safety Report 4454378-3 (Version None)
Quarter: 2004Q3

REPORT INFORMATION
  Report Type: 
  Country: None (occurrence: None)
  Receive Date: 20040826
  Receipt Date: 20040528
  Transmission Date: 20050211
  Serious: No
  Sender: FDA-Public Use
  Company Number: WAES 0406USA00023

PATIENT
  Sex: Female

DRUGS (2)
  1. ZETIA [Suspect]
     Indication: DRUG USE FOR UNKNOWN INDICATION
     Dosage: 10MG, DAILY; PO (SEE IMAGE)
     Route: 048
     Dates: end: 20040517
  2. ZETIA [Suspect]
     Indication: DRUG USE FOR UNKNOWN INDICATION
     Dosage: 10MG, DAILY; PO (SEE IMAGE)
     Route: 048
     Dates: start: 20040524

REACTIONS (1)
  - PAIN [None]
